FAERS Safety Report 23623990 (Version 2)
Quarter: 2024Q2

REPORT INFORMATION
  Report Type: Spontaneous
  Country: AU (occurrence: AU)
  Receive Date: 20240312
  Receipt Date: 20240515
  Transmission Date: 20240716
  Serious: Yes (Other)
  Sender: FDA-Public Use
  Company Number: AU-Eisai-EC-2024-161472

PATIENT
  Age: 49 Year
  Sex: Male
  Weight: 129 kg

DRUGS (11)
  1. RABEPRAZOLE [Suspect]
     Active Substance: RABEPRAZOLE
     Indication: Product used for unknown indication
     Route: 048
  2. ATORVASTATIN CALCIUM [Suspect]
     Active Substance: ATORVASTATIN CALCIUM
     Indication: Product used for unknown indication
     Route: 048
  3. CITALOPRAM HYDROBROMIDE [Suspect]
     Active Substance: CITALOPRAM HYDROBROMIDE
     Indication: Product used for unknown indication
     Route: 048
  4. DIAZEPAM [Suspect]
     Active Substance: DIAZEPAM
     Indication: Product used for unknown indication
     Dosage: MIDDAY PRN
     Route: 048
  5. PROPRANOLOL HYDROCHLORIDE [Suspect]
     Active Substance: PROPRANOLOL HYDROCHLORIDE
     Indication: Anxiety
     Dosage: TDS PRN
  6. PROPRANOLOL HYDROCHLORIDE [Suspect]
     Active Substance: PROPRANOLOL HYDROCHLORIDE
     Indication: Sinus tachycardia
  7. THIAMINE [Suspect]
     Active Substance: THIAMINE
     Indication: Product used for unknown indication
  8. CARIPRAZINE [Suspect]
     Active Substance: CARIPRAZINE
     Indication: Product used for unknown indication
     Dates: start: 20221223
  9. NICOTINE [Suspect]
     Active Substance: NICOTINE
     Indication: Product used for unknown indication
     Dosage: 15 SPRAYS
  10. ATROPINE [Suspect]
     Active Substance: ATROPINE\ATROPINE SULFATE
     Indication: Salivary hypersecretion
     Dosage: 0.1% DROPS (DOSE AND FREQUENCY UNKNOWN)
  11. CLOZAPINE [Suspect]
     Active Substance: CLOZAPINE
     Indication: Schizophrenia
     Dosage: DOSES AS HIGH AS 800MG; DID NOT BELIEVE TO HAVE BEEN USEFUL; INTERMITTENT NON-COMPLIANCE
     Dates: start: 2006

REACTIONS (14)
  - Left ventricular hypertrophy [Unknown]
  - Electrocardiogram QT prolonged [Unknown]
  - QRS axis abnormal [Unknown]
  - Electrocardiogram ST-T segment abnormal [Unknown]
  - Liver function test abnormal [Unknown]
  - Blood prolactin abnormal [Unknown]
  - Orthostatic hypotension [Recovering/Resolving]
  - Vitamin D abnormal [Unknown]
  - Blood glucose increased [Unknown]
  - Diarrhoea [Recovered/Resolved]
  - Blood urea abnormal [Unknown]
  - Blood calcium abnormal [Unknown]
  - Sleep apnoea syndrome [Unknown]
  - Treatment noncompliance [Unknown]
